FAERS Safety Report 19987276 (Version 1)
Quarter: 2021Q4

REPORT INFORMATION
  Report Type: Spontaneous
  Country: US (occurrence: US)
  Receive Date: 20211022
  Receipt Date: 20211022
  Transmission Date: 20220303
  Serious: Yes (Other)
  Sender: FDA-Public Use
  Company Number: US-AMNEAL PHARMACEUTICALS-2021-AMRX-04317

PATIENT

DRUGS (1)
  1. DOXYCYCLINE [Suspect]
     Active Substance: DOXYCYCLINE
     Indication: Aneurysmal bone cyst
     Dosage: 200 MG IN 5 ML STERILE H20 WITH 5 ML 25% ALBUMIN WITH 10 ML AIR
     Route: 065

REACTIONS (1)
  - Cerebrovascular accident [Recovered/Resolved]
